FAERS Safety Report 21022906 (Version 1)
Quarter: 2022Q2

REPORT INFORMATION
  Report Type: Spontaneous
  Country: US (occurrence: None)
  Receive Date: 20220629
  Receipt Date: 20220629
  Transmission Date: 20220721
  Serious: Yes (Other)
  Sender: FDA-Public Use
  Company Number: None

PATIENT
  Sex: 0

DRUGS (1)
  1. AMIODARONE [Suspect]
     Active Substance: AMIODARONE
     Dates: start: 20220627, end: 20220628

REACTIONS (3)
  - Infusion related reaction [None]
  - Phlebitis [None]
  - Infusion site erythema [None]

NARRATIVE: CASE EVENT DATE: 20220628
